FAERS Safety Report 6177630-2 (Version None)
Quarter: 2009Q2

REPORT INFORMATION
  Report Type: 
  Country: None (occurrence: None)
  Receive Date: 20090504
  Receipt Date: 20090428
  Transmission Date: 20091009
  Serious: Yes (Hospitalization, Other)
  Sender: FDA-Public Use
  Company Number: MY-AVENTIS-200914373GDDC

PATIENT
  Age: 54 Year
  Sex: Female

DRUGS (6)
  1. ARAVA [Suspect]
     Route: 048
     Dates: start: 20070701, end: 20080101
  2. ARAVA [Suspect]
     Route: 048
     Dates: start: 20080101
  3. ARAVA [Suspect]
     Route: 048
     Dates: start: 20090308, end: 20090409
  4. METHOTREXATE [Concomitant]
     Dosage: DOSE: UNK
  5. METHOTREXATE [Concomitant]
     Dosage: DOSE: UNK
     Dates: start: 20080701, end: 20090423
  6. PREDNISOLONE [Concomitant]
     Indication: RHEUMATOID ARTHRITIS
     Route: 048
     Dates: end: 20090301

REACTIONS (1)
  - ALANINE AMINOTRANSFERASE INCREASED [None]
